FAERS Safety Report 7972076-6 (Version None)
Quarter: 2011Q4

REPORT INFORMATION
  Report Type: 
  Country: None (occurrence: None)
  Receive Date: 20111212
  Receipt Date: 20111207
  Transmission Date: 20120403
  Serious: No
  Sender: FDA-Public Use
  Company Number: US-PFIZER INC-2011299260

PATIENT
  Sex: Female
  Weight: 80.726 kg

DRUGS (8)
  1. HYDROCHLOROTHIAZIDE [Concomitant]
     Dosage: UNK
  2. CADUET [Suspect]
     Indication: HYPERTENSION
     Dosage: [AMLODIPINE BESILATE 10 MG]/[ATORVASTATIN CALCIUM 20 MG], 1X/DAY
     Route: 048
     Dates: end: 20111204
  3. BYSTOLIC [Concomitant]
     Dosage: UNK
  4. CALCIUM WITH VITAMIN D [Concomitant]
     Dosage: UNK
  5. VITAMIN D [Concomitant]
     Dosage: UNK
  6. VITAMIN B COMPLEX CAP [Concomitant]
     Dosage: UNK
  7. CADUET [Suspect]
     Indication: BLOOD CHOLESTEROL INCREASED
     Dosage: UNK
     Route: 048
     Dates: start: 20111206
  8. CARBATROL [Concomitant]
     Indication: GRAND MAL CONVULSION
     Dosage: UNK

REACTIONS (5)
  - DIPLOPIA [None]
  - DIZZINESS [None]
  - VISION BLURRED [None]
  - BLOOD CHOLESTEROL INCREASED [None]
  - NAUSEA [None]
